FAERS Safety Report 6835891-8 (Version None)
Quarter: 2010Q3

REPORT INFORMATION
  Report Type: 
  Country: None (occurrence: None)
  Receive Date: 20100713
  Receipt Date: 20100706
  Transmission Date: 20110219
  Serious: Yes (Other)
  Sender: FDA-Public Use
  Company Number: PL-ALLERGAN-1008046US

PATIENT
  Age: 51 Year
  Sex: Female

DRUGS (2)
  1. LUMIGAN [Suspect]
     Indication: OCULAR HYPERTENSION
     Dosage: UNK
     Route: 047
     Dates: start: 20100310, end: 20100415
  2. LUMIGAN [Suspect]
     Indication: PSEUDOEXFOLIATION OF LENS CAPSULE

REACTIONS (2)
  - RETINAL HAEMORRHAGE [None]
  - RETINAL VEIN THROMBOSIS [None]
